FAERS Safety Report 9302855 (Version 1)
Quarter: 2013Q2

REPORT INFORMATION
  Report Type: Spontaneous
  Country: US (occurrence: US)
  Receive Date: 20130522
  Receipt Date: 20130522
  Transmission Date: 20140414
  Serious: Yes (Hospitalization, Other)
  Sender: FDA-Public Use
  Company Number: US-BAYER-2013-061200

PATIENT
  Age: 37 Year
  Sex: Female
  Weight: 68.03 kg

DRUGS (9)
  1. YAZ [Suspect]
  2. LOPRESSOR [Concomitant]
  3. NITROGLYCERIN [Concomitant]
  4. INTEGRILIN [Concomitant]
  5. PLAVIX [Concomitant]
  6. ACETAMINOPHEN W/CODEINE [Concomitant]
  7. LIPITOR [Concomitant]
  8. METOPROLOL [Concomitant]
  9. ENALAPRIL [Concomitant]

REACTIONS (2)
  - Acute myocardial infarction [None]
  - Intracardiac thrombus [None]
